FAERS Safety Report 4988061-2 (Version None)
Quarter: 2006Q2

REPORT INFORMATION
  Report Type: 
  Country: None (occurrence: None)
  Receive Date: 20060425
  Receipt Date: 20060413
  Transmission Date: 20061013
  Serious: Yes (Hospitalization)
  Sender: FDA-Public Use
  Company Number: 2006049448

PATIENT
  Age: 79 Year
  Sex: Female
  Weight: 51 kg

DRUGS (7)
  1. NORVASC [Suspect]
     Indication: HYPERTENSION
     Dosage: 10 MG (10 MG, QD), ORAL
     Route: 048
     Dates: start: 20050426
  2. ITRACONAZOLE [Suspect]
     Indication: NAIL TINEA
     Dosage: ORAL
     Route: 048
     Dates: start: 20060317, end: 20060323
  3. SIGMART (NICORANDIL) [Concomitant]
  4. LIPITOR [Concomitant]
  5. MUCOSTA (REBAMIPIDE) [Concomitant]
  6. MAGNESIUM OXIDE (MAGNESIUM OXIDE) [Concomitant]
  7. ALESION (EPINASTINE HYDROCHLORIDE) [Concomitant]

REACTIONS (3)
  - ATRIAL FIBRILLATION [None]
  - CARDIAC FAILURE [None]
  - RENAL FAILURE [None]
